FAERS Safety Report 17525793 (Version 1)
Quarter: 2020Q1

REPORT INFORMATION
  Report Type: Spontaneous
  Country: US (occurrence: US)
  Receive Date: 20200310
  Receipt Date: 20200310
  Transmission Date: 20200409
  Serious: Yes (Other)
  Sender: FDA-Public Use
  Company Number: US-ALLERGAN-2010483US

PATIENT
  Sex: Female

DRUGS (1)
  1. LINZESS [Suspect]
     Active Substance: LINACLOTIDE
     Indication: CONSTIPATION
     Dosage: 145 ?G
     Route: 048

REACTIONS (4)
  - Pain [Unknown]
  - Abdominal mass [Unknown]
  - Colitis [Unknown]
  - Vomiting [Unknown]

NARRATIVE: CASE EVENT DATE: 202001
